FAERS Safety Report 6880207-4 (Version None)
Quarter: 2010Q3

REPORT INFORMATION
  Report Type: 
  Country: None (occurrence: None)
  Receive Date: 20100728
  Receipt Date: 20100521
  Transmission Date: 20110219
  Serious: No
  Sender: FDA-Public Use
  Company Number: US-BRISTOL-MYERS SQUIBB COMPANY-15119159

PATIENT
  Sex: Female

DRUGS (1)
  1. SPRYCEL [Suspect]
     Dosage: 4 WEEKS

REACTIONS (3)
  - PLATELET COUNT DECREASED [None]
  - RED BLOOD CELL COUNT DECREASED [None]
  - WHITE BLOOD CELL COUNT DECREASED [None]
